FAERS Safety Report 7903393-3 (Version None)
Quarter: 2011Q4

REPORT INFORMATION
  Report Type: 
  Country: None (occurrence: None)
  Receive Date: 20111109
  Receipt Date: 20111103
  Transmission Date: 20120403
  Serious: No
  Sender: FDA-Public Use
  Company Number: US-AMGEN-USASP2011036926

PATIENT
  Sex: Female

DRUGS (1)
  1. ENBREL [Suspect]
     Indication: RHEUMATOID ARTHRITIS
     Dosage: 50 MG, QWK
     Dates: start: 20070724, end: 20110501

REACTIONS (4)
  - LABORATORY TEST ABNORMAL [None]
  - FATIGUE [None]
  - ANAEMIA [None]
  - FIBROMYALGIA [None]
